FAERS Safety Report 14653993 (Version 1)
Quarter: 2018Q1

REPORT INFORMATION
  Report Type: Report from Study
  Country: None (occurrence: US)
  Receive Date: 20180319
  Receipt Date: 20180319
  Transmission Date: 20180509
  Serious: Yes (Hospitalization, Other)
  Sender: FDA-Public Use
  Company Number: US-ABBVIE-17K-163-2060498-00

PATIENT
  Age: 59 Year
  Sex: Female

DRUGS (3)
  1. METHOTREXATE. [Suspect]
     Active Substance: METHOTREXATE
     Indication: PRODUCT USED FOR UNKNOWN INDICATION
     Route: 065
  2. HUMIRA [Suspect]
     Active Substance: ADALIMUMAB
     Indication: RHEUMATOID ARTHRITIS
     Route: 058
     Dates: end: 2017
  3. HUMIRA [Suspect]
     Active Substance: ADALIMUMAB
     Route: 058
     Dates: start: 201710

REACTIONS (9)
  - Asthenia [Not Recovered/Not Resolved]
  - Pouchitis [Unknown]
  - Deep vein thrombosis [Unknown]
  - Loss of consciousness [Unknown]
  - Influenza [Unknown]
  - Drug ineffective [Recovering/Resolving]
  - Pulmonary embolism [Unknown]
  - Rash [Recovered/Resolved]
  - Respiratory tract infection viral [Unknown]

NARRATIVE: CASE EVENT DATE: 20180101
